FAERS Safety Report 23522644 (Version 2)
Quarter: 2024Q1

REPORT INFORMATION
  Report Type: Report from Study
  Country: US (occurrence: US)
  Receive Date: 20240214
  Receipt Date: 20240320
  Transmission Date: 20240410
  Serious: Yes (Hospitalization)
  Sender: FDA-Public Use
  Company Number: US-Eisai-EC-2024-157678

PATIENT
  Age: 58 Year
  Sex: Male
  Weight: 83.9 kg

DRUGS (12)
  1. LENVIMA [Suspect]
     Active Substance: LENVATINIB
     Indication: Renal cancer
     Dosage: MISSED 1 DOSE; MISSED 1 DOSE
     Route: 048
     Dates: start: 20240112
  2. FENTANYL [Suspect]
     Active Substance: FENTANYL\FENTANYL CITRATE
     Indication: Product used for unknown indication
     Dosage: DOSE AND FREQUENCY UNKNOWN
  3. KEYTRUDA [Suspect]
     Active Substance: PEMBROLIZUMAB
     Indication: Renal cell carcinoma
     Dosage: 100 MG/4 ML VIAL. DOSE AND FREQUENCY UNKNOWN
     Route: 042
  4. LEVOTHYROXINE SODIUM [Concomitant]
     Active Substance: LEVOTHYROXINE SODIUM
     Indication: Product used for unknown indication
     Dosage: DOSE AND FREQUENCY UNKNOWN
  5. ONDANSETRON [Concomitant]
     Active Substance: ONDANSETRON
     Indication: Product used for unknown indication
     Dosage: DOSE AND FREQUENCY UNKNOWN
  6. OLANZAPINE [Concomitant]
     Active Substance: OLANZAPINE
     Indication: Product used for unknown indication
     Dosage: DOSE AND FREQUENCY UNKNOWN
  7. OXYCODONE [Concomitant]
     Active Substance: OXYCODONE\OXYCODONE HYDROCHLORIDE
     Indication: Product used for unknown indication
     Dosage: DOSE AND FREQUENCY UNKNOWN
  8. PANTOPRAZOLE [Concomitant]
     Active Substance: PANTOPRAZOLE
     Indication: Product used for unknown indication
     Dosage: DOSE AND FREQUENCY UNKNOWN
  9. CLOBETASOL PROPIONATE [Concomitant]
     Active Substance: CLOBETASOL PROPIONATE
     Indication: Product used for unknown indication
     Dosage: DOSE AND FREQUENCY UNKNOWN
  10. TRIAMCINOLONE ACETONIDE [Concomitant]
     Active Substance: TRIAMCINOLONE ACETONIDE
     Indication: Product used for unknown indication
  11. SYMPROIC [Concomitant]
     Active Substance: NALDEMEDINE
     Indication: Product used for unknown indication
     Dosage: FREQUENCY UNKNOWN
  12. LOSARTAN POTASSIUM [Concomitant]
     Active Substance: LOSARTAN POTASSIUM
     Indication: Product used for unknown indication
     Dosage: FREQUENCY UNKNOWN

REACTIONS (9)
  - Myalgia [Unknown]
  - Pain [Unknown]
  - Renal impairment [Recovered/Resolved]
  - Hypertension [Recovering/Resolving]
  - Vomiting [Unknown]
  - Decreased appetite [Not Recovered/Not Resolved]
  - Constipation [Recovering/Resolving]
  - Blood bilirubin decreased [Not Recovered/Not Resolved]
  - Rash [Recovering/Resolving]

NARRATIVE: CASE EVENT DATE: 20240101
